FAERS Safety Report 6176406-X (Version None)
Quarter: 2009Q2

REPORT INFORMATION
  Report Type: 
  Country: None (occurrence: None)
  Receive Date: 20090501
  Receipt Date: 20090427
  Transmission Date: 20091009
  Serious: Yes (Hospitalization, Other)
  Sender: FDA-Public Use
  Company Number: JP-MERCK-0904USA03907

PATIENT
  Age: 68 Year
  Sex: Male

DRUGS (6)
  1. ZETIA [Suspect]
     Indication: HYPERLIPIDAEMIA
     Route: 048
     Dates: start: 20090402, end: 20090416
  2. WARFARIN POTASSIUM [Concomitant]
     Route: 065
     Dates: start: 20071003
  3. LANSOPRAZOLE [Concomitant]
     Route: 065
     Dates: start: 20081114
  4. CIFENLINE SUCCINATE [Concomitant]
     Route: 065
     Dates: start: 20081121
  5. AMLODIPINE BESYLATE [Concomitant]
     Route: 065
     Dates: start: 20081211
  6. ETHYL ICOSAPENTATE [Concomitant]
     Route: 065
     Dates: start: 20090108

REACTIONS (1)
  - HEPATIC FUNCTION ABNORMAL [None]
